FAERS Safety Report 11217593 (Version 10)
Quarter: 2016Q3

REPORT INFORMATION
  Report Type: Report from Study
  Country: CA (occurrence: CA)
  Receive Date: 20150625
  Receipt Date: 20160912
  Transmission Date: 20161109
  Serious: Yes (Hospitalization, Other)
  Sender: FDA-Public Use
  Company Number: PHHY2014CA139234

PATIENT
  Age: 59 Year
  Sex: Male

DRUGS (4)
  1. SANDOSTATIN LAR DEPOT [Suspect]
     Active Substance: OCTREOTIDE ACETATE
     Indication: NEUROENDOCRINE TUMOUR
     Dosage: 30 MG, QMO (EVERY 4 WEEKS)
     Route: 030
     Dates: start: 20141021, end: 20160613
  2. PENICILLIN V [Concomitant]
     Active Substance: PENICILLIN V
     Indication: PRODUCT USED FOR UNKNOWN INDICATION
     Dosage: 300 MG, TID
     Route: 065
     Dates: start: 20150211
  3. OCTREOTIDE. [Concomitant]
     Active Substance: OCTREOTIDE
     Indication: PRODUCT USED FOR UNKNOWN INDICATION
     Route: 065
  4. SANDOSTATIN LAR DEPOT [Suspect]
     Active Substance: OCTREOTIDE ACETATE
     Dosage: 40 MG, QMO (EVERY 4 WEEKS)
     Route: 030
     Dates: start: 20160711

REACTIONS (26)
  - Influenza [Unknown]
  - Diarrhoea [Unknown]
  - Increased appetite [Unknown]
  - Hepatic neoplasm [Unknown]
  - Anxiety [Unknown]
  - Gastrointestinal sounds abnormal [Unknown]
  - Asthenia [Unknown]
  - Malaise [Unknown]
  - Pain in jaw [Recovering/Resolving]
  - Blood pressure increased [Unknown]
  - Stress [Unknown]
  - Device failure [Unknown]
  - Abdominal pain lower [Unknown]
  - Arthralgia [Unknown]
  - Pollakiuria [Unknown]
  - Flatulence [Unknown]
  - Polyuria [Recovered/Resolved]
  - Blood pressure systolic increased [Unknown]
  - Neuralgia [Unknown]
  - Intestinal obstruction [Unknown]
  - Abdominal pain [Recovered/Resolved]
  - Flushing [Unknown]
  - Nausea [Unknown]
  - Fatigue [Unknown]
  - Tumour haemorrhage [Unknown]
  - Feeling abnormal [Unknown]

NARRATIVE: CASE EVENT DATE: 20141021
